FAERS Safety Report 5513502-1 (Version None)
Quarter: 2007Q4

REPORT INFORMATION
  Report Type: 
  Country: None (occurrence: None)
  Receive Date: 20071112
  Receipt Date: 20071107
  Transmission Date: 20080405
  Serious: Yes (Death, Life-Threatening)
  Sender: FDA-Public Use
  Company Number: US-GENENTECH-248750

PATIENT
  Sex: Female
  Weight: 46.259 kg

DRUGS (17)
  1. BEVACIZUMAB [Suspect]
     Indication: NON-SMALL CELL LUNG CANCER
     Dosage: 735 MG, Q3W
     Route: 042
     Dates: start: 20070824
  2. ERLOTINIB [Suspect]
     Indication: NON-SMALL CELL LUNG CANCER
     Dosage: 150 MG, QD
     Route: 048
     Dates: start: 20070824
  3. DARVOCET [Concomitant]
     Indication: PAIN
     Dates: start: 20070301, end: 20070921
  4. MAGARTE [Concomitant]
     Indication: ANOREXIA
     Dates: start: 20070731
  5. ATIVAN [Concomitant]
     Indication: ANXIETY
     Dates: start: 20070301
  6. ATIVAN [Concomitant]
     Indication: NAUSEA
  7. POTASSIUM CHLORIDE [Concomitant]
     Indication: HYPOKALAEMIA
     Dates: start: 20070628
  8. VITAMIN B6 [Concomitant]
     Indication: PROPHYLAXIS
     Dates: start: 20070301
  9. VITAMIN B6 [Concomitant]
     Indication: NEUROPATHY
  10. ATROVENT [Concomitant]
     Indication: CHRONIC OBSTRUCTIVE PULMONARY DISEASE
     Dates: start: 20070301
  11. ULTRACET [Concomitant]
     Indication: PAIN
     Dates: start: 20070301
  12. COMPAZINE [Concomitant]
     Indication: NAUSEA
     Dates: start: 20070301
  13. CALCIUM [Concomitant]
     Indication: MEDICAL DIET
     Dates: start: 20060101
  14. PROZAC [Concomitant]
     Indication: DEPRESSION
     Dates: start: 20070822
  15. PROZAC [Concomitant]
     Indication: ANXIETY
  16. LUNESTA [Concomitant]
     Indication: INSOMNIA
     Dates: start: 20070801
  17. ZOFRAN [Concomitant]
     Indication: NAUSEA
     Dates: start: 20070820

REACTIONS (1)
  - PULMONARY HAEMORRHAGE [None]
